FAERS Safety Report 4383472-0 (Version None)
Quarter: 2004Q2

REPORT INFORMATION
  Report Type: 
  Country: None (occurrence: None)
  Receive Date: 20040618
  Receipt Date: 20040609
  Transmission Date: 20050107
  Serious: Yes (Hospitalization)
  Sender: FDA-Public Use
  Company Number: EWC040639486

PATIENT
  Age: 48 Year
  Sex: Female
  Weight: 65 kg

DRUGS (27)
  1. XIGRIS [Suspect]
     Indication: SEPSIS
  2. ENOXAPARIN SODIUM [Suspect]
     Indication: SEPSIS
  3. NOREPINEPHRINE BITARTRATE [Concomitant]
  4. ACTRAPID (INSULIN) [Concomitant]
  5. EUPHYLLIN (AMINOPHYLLINE) [Concomitant]
  6. KETANEST (KETAMINE) [Concomitant]
  7. DORMICUM  (NITRAZEPAM) [Concomitant]
  8. NOVALDIN INJ [Concomitant]
  9. NEOSTIGMINE [Concomitant]
  10. LASIX [Concomitant]
  11. SULTANOL (SALBUTAMOL) [Concomitant]
  12. NORVASC [Concomitant]
  13. RAMIPRIL [Concomitant]
  14. LIQUAEMIN INJ [Concomitant]
  15. PANTOZOL (PANTOPRAZOLE SODIUM) [Concomitant]
  16. BETABION    (THIAMINE HYDROCHLORIDE) [Concomitant]
  17. BEROTEC        (FENOTEROL HYDROBROMIDE) [Concomitant]
  18. BERODUAL [Concomitant]
  19. L-THYROXINE [Concomitant]
  20. BRICANYL [Concomitant]
  21. DIPIDOLOR (PIRITRAMIDE) [Concomitant]
  22. PROPOFOL [Concomitant]
  23. METRONIDAZOLE [Concomitant]
  24. DIFLUCAN [Concomitant]
  25. KLACID(CARITHROMYCIN) [Concomitant]
  26. ROCEPHIN [Concomitant]
  27. KALINOR (POTASSIUM CHLORIDE) [Concomitant]

REACTIONS (4)
  - BRAIN ABSCESS [None]
  - CEREBRAL HAEMORRHAGE [None]
  - LUNG INFILTRATION [None]
  - MULTI-ORGAN FAILURE [None]
